FAERS Safety Report 12009689 (Version 4)
Quarter: 2016Q2

REPORT INFORMATION
  Report Type: Spontaneous
  Country: US (occurrence: US)
  Receive Date: 20160205
  Receipt Date: 20160429
  Transmission Date: 20160815
  Serious: Yes (Other)
  Sender: FDA-Public Use
  Company Number: US-PFIZER INC-2016060590

PATIENT
  Age: 65 Year
  Sex: Female

DRUGS (3)
  1. FASLODEX [Suspect]
     Active Substance: FULVESTRANT
     Indication: BREAST CANCER METASTATIC
  2. ZOMETA [Suspect]
     Active Substance: ZOLEDRONIC ACID
     Indication: BREAST CANCER METASTATIC
     Dosage: 4 MG, CYCLIC: EVERY 4 WEEKS
     Route: 042
  3. IBRANCE [Suspect]
     Active Substance: PALBOCICLIB
     Indication: BREAST CANCER METASTATIC
     Dosage: 125 MG, CYCLIC (DAILY X 21 DAYS EVERY 28 DAYS)
     Route: 048
     Dates: start: 201512

REACTIONS (7)
  - Throat lesion [Unknown]
  - Pharyngitis streptococcal [Recovered/Resolved]
  - Diabetes mellitus [Unknown]
  - Product use issue [Unknown]
  - Hypoaesthesia oral [Recovered/Resolved]
  - Disease progression [Unknown]
  - Breast cancer metastatic [Unknown]

NARRATIVE: CASE EVENT DATE: 20160125
